FAERS Safety Report 10022234 (Version 1)
Quarter: 2013Q4

REPORT INFORMATION
  Report Type: Spontaneous
  Country: US (occurrence: None)
  Receive Date: 20131217
  Receipt Date: 20131217
  Transmission Date: 20140711
  Serious: Yes (Other)
  Sender: FDA-Public Use
  Company Number: 201311038

PATIENT
  Age: 31 Month
  Sex: Male

DRUGS (2)
  1. TESTIM [Suspect]
     Dosage: 1 IN 1 D, TRANSDERMAL
     Route: 062
     Dates: start: 20070822, end: 2008
  2. ANDROGEL [Suspect]

REACTIONS (10)
  - Rathke^s cleft cyst [None]
  - Attention deficit/hyperactivity disorder [None]
  - Lactose intolerance [None]
  - Autism [None]
  - Aggression [None]
  - Bone development abnormal [None]
  - Exposure via direct contact [None]
  - Accidental exposure to product by child [None]
  - Precocious puberty [None]
  - Viral upper respiratory tract infection [None]
